FAERS Safety Report 11808143 (Version 1)
Quarter: 2015Q4

REPORT INFORMATION
  Report Type: Spontaneous
  Country: IT (occurrence: IT)
  Receive Date: 20151207
  Receipt Date: 20151207
  Transmission Date: 20160305
  Serious: Yes (Other)
  Sender: FDA-Public Use
  Company Number: IT-TEVA-613448ACC

PATIENT
  Age: 36 Year
  Sex: Male
  Weight: 77 kg

DRUGS (4)
  1. TAXOTERE [Suspect]
     Active Substance: DOCETAXEL
     Indication: ADENOCARCINOMA GASTRIC
     Dosage: 90 MG CYCLICAL
     Route: 042
     Dates: start: 20150126, end: 20150420
  2. LEDERFOLIN - PFIZER ITALIA S.R.L. [Suspect]
     Active Substance: LEUCOVORIN CALCIUM
     Indication: ADENOCARCINOMA GASTRIC
     Dosage: 360 MG CYCLICAL
     Route: 042
     Dates: start: 20150126, end: 20150420
  3. OXALIPLATIN. [Suspect]
     Active Substance: OXALIPLATIN
     Indication: ADENOCARCINOMA GASTRIC
     Dosage: 150 MG CYCLICAL
     Route: 042
     Dates: start: 20150126, end: 20150420
  4. FLUOROURACIL. [Suspect]
     Active Substance: FLUOROURACIL
     Indication: ADENOCARCINOMA GASTRIC
     Dosage: 4300 MG CYCLICAL
     Route: 042
     Dates: start: 20150126, end: 20150420

REACTIONS (1)
  - Abdominal pain [Unknown]

NARRATIVE: CASE EVENT DATE: 20150315
